FAERS Safety Report 18117356 (Version 1)
Quarter: 2020Q3

REPORT INFORMATION
  Report Type: Spontaneous
  Country: GB (occurrence: GB)
  Receive Date: 20200805
  Receipt Date: 20200805
  Transmission Date: 20201103
  Serious: Yes (Life-Threatening, Hospitalization)
  Sender: FDA-Public Use
  Company Number: GB-009507513-2008GBR000782

PATIENT
  Age: 35 Year
  Sex: Female

DRUGS (2)
  1. SERTRALINE HYDROCHLORIDE. [Concomitant]
     Active Substance: SERTRALINE HYDROCHLORIDE
  2. NEXPLANON [Suspect]
     Active Substance: ETONOGESTREL
     Indication: CONTRACEPTION
     Dosage: UNK
     Route: 058
     Dates: start: 20171221

REACTIONS (5)
  - Hypotension [Recovering/Resolving]
  - Pregnancy with implant contraceptive [Unknown]
  - Pelvic pain [Recovering/Resolving]
  - Acute abdomen [Recovering/Resolving]
  - Ruptured ectopic pregnancy [Recovering/Resolving]

NARRATIVE: CASE EVENT DATE: 20200701
